FAERS Safety Report 6300606-9 (Version None)
Quarter: 2009Q3

REPORT INFORMATION
  Report Type: 
  Country: None (occurrence: None)
  Receive Date: 20090806
  Receipt Date: 20090616
  Transmission Date: 20100115
  Serious: No
  Sender: FDA-Public Use
  Company Number: US-ABBOTT-09P-163-0580516-00

PATIENT
  Sex: Male
  Weight: 106.69 kg

DRUGS (4)
  1. DEPAKOTE ER [Suspect]
     Indication: EPILEPSY
     Route: 048
  2. LAMICTAL [Suspect]
     Indication: EPILEPSY
     Route: 048
     Dates: start: 20050101
  3. TIMOLOL [Concomitant]
     Indication: GLAUCOMA
     Dosage: TWO TIMES DAILY. IN AM AND PM
     Route: 047
  4. AVAPRO [Concomitant]
     Indication: HYPERTENSION

REACTIONS (2)
  - ALOPECIA [None]
  - WEIGHT INCREASED [None]
